FAERS Safety Report 10286396 (Version 2)
Quarter: 2014Q3

REPORT INFORMATION
  Report Type: Spontaneous
  Country: US (occurrence: US)
  Receive Date: 20140709
  Receipt Date: 20140815
  Transmission Date: 20150326
  Serious: No
  Sender: FDA-Public Use
  Company Number: US-PFIZER INC-2014186166

PATIENT
  Age: 63 Year
  Sex: Male
  Weight: 80.73 kg

DRUGS (2)
  1. LIPITOR [Concomitant]
     Active Substance: ATORVASTATIN CALCIUM
     Dosage: UNK
  2. VIAGRA [Suspect]
     Active Substance: SILDENAFIL CITRATE
     Dosage: 100 MG, AS NEEDED
     Route: 048
     Dates: start: 2006

REACTIONS (6)
  - Product physical issue [Unknown]
  - Product lot number issue [Unknown]
  - Drug ineffective [Unknown]
  - Product counterfeit [Unknown]
  - Product expiration date issue [Unknown]
  - Product barcode issue [Unknown]

NARRATIVE: CASE EVENT DATE: 20140406
